FAERS Safety Report 4691263-6 (Version None)
Quarter: 2005Q2

REPORT INFORMATION
  Report Type: 
  Country: None (occurrence: None)
  Receive Date: 20050614
  Receipt Date: 20050531
  Transmission Date: 20051028
  Serious: Yes (Hospitalization, Other)
  Sender: FDA-Public Use
  Company Number: 2005081933

PATIENT
  Age: 41 Year
  Sex: Female
  Weight: 90.7194 kg

DRUGS (9)
  1. BEXTRA [Suspect]
     Indication: ILL-DEFINED DISORDER
     Dosage: ORAL
     Route: 048
     Dates: start: 20040101, end: 20040101
  2. CELEBREX [Suspect]
     Indication: ARTHRITIS
     Dosage: (1 IN 1 D), ORAL
     Route: 048
     Dates: start: 20000101, end: 20010101
  3. CELEBREX [Suspect]
     Indication: CEREBROVASCULAR ACCIDENT
     Dosage: (1 IN 1 D), ORAL
     Route: 048
     Dates: start: 20000101, end: 20010101
  4. LOTREL [Concomitant]
  5. PRAVACHOL (PRAVASTATIN SOIDUM) [Concomitant]
  6. PREVACID [Concomitant]
  7. LASIX [Concomitant]
  8. HUMULIN 70/30 [Concomitant]
  9. TICLID [Concomitant]

REACTIONS (5)
  - CORONARY ARTERY OCCLUSION [None]
  - MYOCARDIAL INFARCTION [None]
  - RASH PAPULAR [None]
  - RASH PRURITIC [None]
  - SKIN INFECTION [None]
